FAERS Safety Report 20509085 (Version 4)
Quarter: 2024Q3

REPORT INFORMATION
  Report Type: Spontaneous
  Country: US (occurrence: US)
  Receive Date: 20220223
  Receipt Date: 20240814
  Transmission Date: 20241017
  Serious: Yes (Other)
  Sender: KYOWA
  Company Number: US-KYOWAKIRIN-2022BKK001908

PATIENT

DRUGS (4)
  1. NOURIANZ [Suspect]
     Active Substance: ISTRADEFYLLINE
     Indication: Parkinson^s disease
     Dosage: 20 MG, TAKE ONE TABLET BY MOUTH ONCE DAILY
     Route: 048
     Dates: start: 20201110
  2. INBRIJA [Concomitant]
     Active Substance: LEVODOPA
     Indication: Product used for unknown indication
     Dosage: UNK
     Route: 065
  3. GOCOVRI [Concomitant]
     Active Substance: AMANTADINE
     Indication: Product used for unknown indication
     Dosage: 137 MG
     Route: 065
  4. RASAGILINE MESYLATE [Concomitant]
     Active Substance: RASAGILINE MESYLATE
     Indication: Product used for unknown indication
     Dosage: UNK (POW)
     Route: 065

REACTIONS (8)
  - Hallucination [Unknown]
  - Constipation [Not Recovered/Not Resolved]
  - Dry mouth [Unknown]
  - Fatigue [Unknown]
  - Condition aggravated [Not Recovered/Not Resolved]
  - Tremor [Not Recovered/Not Resolved]
  - Sleep disorder [Unknown]
  - Impulse-control disorder [Unknown]
